FAERS Safety Report 8688105 (Version 2)
Quarter: 2013Q1

REPORT INFORMATION
  Report Type: Spontaneous
  Country: FR (occurrence: FR)
  Receive Date: 20120727
  Receipt Date: 20130123
  Transmission Date: 20140127
  Serious: Yes (Hospitalization)
  Sender: FDA-Public Use
  Company Number: FR-ROCHE-1091104

PATIENT
  Age: 16 Year
  Sex: Female

DRUGS (12)
  1. ROACTEMRA [Suspect]
     Indication: JUVENILE IDIOPATHIC ARTHRITIS
     Route: 042
     Dates: start: 20120404, end: 20120703
  2. ROACTEMRA [Suspect]
     Route: 042
     Dates: start: 20120503
  3. ROACTEMRA [Suspect]
     Route: 042
     Dates: start: 20120531
  4. ROACTEMRA [Suspect]
     Route: 042
     Dates: start: 20120703
  5. METHOTREXATE [Concomitant]
     Indication: JUVENILE IDIOPATHIC ARTHRITIS
     Route: 048
     Dates: start: 20120102
  6. SPECIAFOLDINE [Concomitant]
     Route: 048
     Dates: start: 20120102
  7. CORTANCYL [Concomitant]
     Indication: JUVENILE IDIOPATHIC ARTHRITIS
     Route: 048
     Dates: start: 20120102
  8. PARACETAMOL [Concomitant]
     Dosage: 2 TO 3 GM
     Route: 048
     Dates: start: 20120102
  9. PANTOPRAZOLE [Concomitant]
     Route: 048
     Dates: start: 20120107
  10. TRANQUITAL [Concomitant]
     Route: 048
     Dates: start: 20120101
  11. SOLU-MEDROL [Concomitant]
     Route: 040
     Dates: end: 20120703
  12. ORENCIA [Concomitant]
     Route: 065

REACTIONS (6)
  - Hypersensitivity [Recovered/Resolved]
  - Feeling hot [Recovered/Resolved]
  - Swelling face [Recovered/Resolved]
  - Erythema [Recovered/Resolved]
  - Pruritus [Recovered/Resolved]
  - Laryngeal discomfort [Recovered/Resolved]
